FAERS Safety Report 7555125-9 (Version None)
Quarter: 2011Q2

REPORT INFORMATION
  Report Type: 
  Country: None (occurrence: None)
  Receive Date: 20110617
  Receipt Date: 20110613
  Transmission Date: 20111010
  Serious: Yes (Hospitalization, Other)
  Sender: FDA-Public Use
  Company Number: CA-ABBOTT-11P-028-0732560-00

PATIENT
  Sex: Female
  Weight: 72.64 kg

DRUGS (1)
  1. HUMIRA [Suspect]
     Indication: CROHN'S DISEASE
     Route: 058
     Dates: start: 20080704, end: 20110530

REACTIONS (7)
  - INCISION SITE PAIN [None]
  - DIARRHOEA [None]
  - PROCEDURAL PAIN [None]
  - INTESTINAL STENOSIS [None]
  - POSTOPERATIVE WOUND INFECTION [None]
  - ABDOMINAL PAIN UPPER [None]
  - POSTOPERATIVE WOUND COMPLICATION [None]
